FAERS Safety Report 7321409 (Version 2)
Quarter: 2013Q3

REPORT INFORMATION
  Report Type: Spontaneous
  Country: None (occurrence: None)
  Receive Date: 20100223
  Receipt Date: 20130708
  Transmission Date: 20140515
  Serious: Yes (Other)
  Sender: FDA-Public Use
  Company Number: AUR-APL-2010-00448

PATIENT
  Sex: 0

DRUGS (3)
  1. METFORMIN [Suspect]
     Indication: DIABETES MELLITUS
  2. LIPITOR [Suspect]
     Indication: CORONARY ARTERY DISEASE
  3. ACARBOSE [Suspect]
     Indication: DIABETES MELLITUS

REACTIONS (2)
  - Drug interaction [None]
  - Diabetes mellitus inadequate control [None]
